FAERS Safety Report 7680750-4 (Version None)
Quarter: 2011Q3

REPORT INFORMATION
  Report Type: 
  Country: None (occurrence: None)
  Receive Date: 20110812
  Receipt Date: 20110806
  Transmission Date: 20111222
  Serious: Yes (Hospitalization, Other)
  Sender: FDA-Public Use
  Company Number: US-SANOFI-AVENTIS-2011SA051503

PATIENT
  Sex: Male

DRUGS (3)
  1. AMARYL [Suspect]
     Route: 048
  2. METFORMIN HCL [Suspect]
     Route: 065
  3. JANUVIA [Suspect]
     Route: 065

REACTIONS (4)
  - MYOCARDIAL INFARCTION [None]
  - BLOOD CREATININE INCREASED [None]
  - STAPHYLOCOCCAL INFECTION [None]
  - RENAL DISORDER [None]
